FAERS Safety Report 4966077-X (Version None)
Quarter: 2006Q2

REPORT INFORMATION
  Report Type: 
  Country: None (occurrence: None)
  Receive Date: 20060407
  Receipt Date: 20060327
  Transmission Date: 20061013
  Serious: Yes (Hospitalization)
  Sender: FDA-Public Use
  Company Number: PHEH2006US04068

PATIENT
  Age: 70 Year
  Sex: Female

DRUGS (8)
  1. EXJADE [Suspect]
     Indication: BLOOD IRON INCREASED
     Dosage: 250 MG, QD
     Dates: start: 20060214, end: 20060218
  2. ASCORBIC ACID [Concomitant]
  3. AMICAR [Concomitant]
  4. CARDIZEM [Concomitant]
  5. FOLIC ACID [Concomitant]
  6. BERICAR [Concomitant]
  7. VITAMIN B6 [Concomitant]
  8. TAMBOCOR [Concomitant]

REACTIONS (14)
  - BLOOD ALBUMIN DECREASED [None]
  - BLOOD CREATININE INCREASED [None]
  - BLOOD GLUCOSE INCREASED [None]
  - BLOOD POTASSIUM DECREASED [None]
  - BLOOD POTASSIUM INCREASED [None]
  - BLOOD UREA INCREASED [None]
  - CREATININE RENAL CLEARANCE DECREASED [None]
  - GLOBULINS INCREASED [None]
  - GLOMERULAR FILTRATION RATE DECREASED [None]
  - HAEMATOMA [None]
  - INJECTION SITE INFECTION [None]
  - PROTEIN TOTAL DECREASED [None]
  - PROTEIN TOTAL INCREASED [None]
  - PYREXIA [None]
